FAERS Safety Report 8767862 (Version 4)
Quarter: 2014Q3

REPORT INFORMATION
  Report Type: Spontaneous
  Country: US (occurrence: US)
  Receive Date: 20120904
  Receipt Date: 20140804
  Transmission Date: 20150326
  Serious: Yes (Other)
  Sender: FDA-Public Use
  Company Number: US-009507513-1208USA012641

PATIENT
  Sex: Female
  Weight: 75.28 kg

DRUGS (1)
  1. NUVARING [Suspect]
     Active Substance: ETHINYL ESTRADIOL\ETONOGESTREL
     Indication: CONTRACEPTION
     Dosage: UNK
     Route: 067
     Dates: start: 200612, end: 20120321

REACTIONS (16)
  - Major depression [Unknown]
  - Affective disorder [Unknown]
  - Anxiety [Unknown]
  - Low density lipoprotein increased [Unknown]
  - Nasopharyngitis [Unknown]
  - Attention deficit/hyperactivity disorder [Unknown]
  - Cerebrovascular accident [Not Recovered/Not Resolved]
  - Panic attack [Unknown]
  - Post stroke depression [Unknown]
  - Tremor [Unknown]
  - Migraine [Unknown]
  - Cognitive disorder [Unknown]
  - Depression [Unknown]
  - Migraine [Unknown]
  - Adjustment disorder with depressed mood [Not Recovered/Not Resolved]
  - Headache [Unknown]

NARRATIVE: CASE EVENT DATE: 2006
